FAERS Safety Report 12709547 (Version 1)
Quarter: 2016Q3

REPORT INFORMATION
  Report Type: Spontaneous
  Country: US (occurrence: None)
  Receive Date: 20160901
  Receipt Date: 20160901
  Transmission Date: 20161109
  Serious: No
  Sender: FDA-Public Use
  Company Number: None

PATIENT
  Age: 74 Year
  Sex: Male
  Weight: 78 kg

DRUGS (1)
  1. OPDIVO [Suspect]
     Active Substance: NIVOLUMAB
     Indication: NON-SMALL CELL LUNG CANCER
     Dosage: OPDIVO 250 MG - EVERY 2 WEEKS - INTRAVENOUS DRIP
     Route: 041
     Dates: start: 20160729, end: 20160729

REACTIONS (1)
  - Hepatitis [None]

NARRATIVE: CASE EVENT DATE: 20160810
